FAERS Safety Report 10186907 (Version 1)
Quarter: 2014Q2

REPORT INFORMATION
  Report Type: Report from Study
  Country: US (occurrence: US)
  Receive Date: 20140522
  Receipt Date: 20140522
  Transmission Date: 20141212
  Serious: Yes (Other)
  Sender: FDA-Public Use
  Company Number: US-ROCHE-1402101

PATIENT
  Sex: 0

DRUGS (3)
  1. MYCOPHENOLATE MOFETIL [Suspect]
     Indication: PROPHYLAXIS AGAINST TRANSPLANT REJECTION
     Route: 048
  2. TACROLIMUS [Suspect]
     Indication: PROPHYLAXIS AGAINST TRANSPLANT REJECTION
     Route: 065
  3. RABBIT ANTITHYMOCYTE GLOBULIN [Suspect]
     Indication: IMMUNOSUPPRESSION
     Dosage: ON POST OPERATIVE DAYS 0, 1, 2, 3, AND 4
     Route: 065

REACTIONS (5)
  - Post transplant lymphoproliferative disorder [Unknown]
  - Metastatic squamous cell carcinoma [Unknown]
  - Renal cell carcinoma [Unknown]
  - Graft loss [Unknown]
  - Polyomavirus-associated nephropathy [Unknown]
